FAERS Safety Report 24691953 (Version 1)
Quarter: 2024Q4

REPORT INFORMATION
  Report Type: Spontaneous
  Country: US (occurrence: US)
  Receive Date: 20241203
  Receipt Date: 20241203
  Transmission Date: 20250114
  Serious: No
  Sender: MARINUS PHARMACEUTICALS
  Company Number: US-MARINUS PHARMACEUTICALS, INC.-MAR2024000235

PATIENT

DRUGS (2)
  1. ZTALMY [Suspect]
     Active Substance: GANAXOLONE
     Indication: Product used for unknown indication
     Dosage: 9 MILLILITER, BID
     Route: 048
  2. ZTALMY [Suspect]
     Active Substance: GANAXOLONE
     Dosage: 12 MILLILITER, BED TIME
     Route: 048

REACTIONS (5)
  - Anxiety [Unknown]
  - Intermenstrual bleeding [Unknown]
  - Thirst [Unknown]
  - Weight decreased [Unknown]
  - Hypophagia [Unknown]
